FAERS Safety Report 21228735 (Version 3)
Quarter: 2022Q4

REPORT INFORMATION
  Report Type: Report from Study
  Country: CN (occurrence: CN)
  Receive Date: 20220818
  Receipt Date: 20221208
  Transmission Date: 20230112
  Serious: Yes (Hospitalization)
  Sender: FDA-Public Use
  Company Number: CN-GSK-CN2022117938

PATIENT

DRUGS (22)
  1. BELANTAMAB MAFODOTIN [Suspect]
     Active Substance: BELANTAMAB MAFODOTIN
     Indication: Plasma cell myeloma
     Dosage: 112.50 MG, CYC (2.50 MG/KG)
     Route: 042
     Dates: start: 20211221, end: 20211221
  2. BELANTAMAB MAFODOTIN [Suspect]
     Active Substance: BELANTAMAB MAFODOTIN
     Dosage: 112.50 MG, CYC (2.50 MG/KG)
     Route: 042
     Dates: start: 20220111, end: 20220111
  3. BELANTAMAB MAFODOTIN [Suspect]
     Active Substance: BELANTAMAB MAFODOTIN
     Dosage: 85.50 MG, CYC (1.90 MG/KG)
     Route: 042
     Dates: start: 20220412, end: 20220412
  4. BELANTAMAB MAFODOTIN [Suspect]
     Active Substance: BELANTAMAB MAFODOTIN
     Dosage: 85.50 MG, CYC (1.90 MG/KG)
     Route: 042
     Dates: start: 20220531, end: 20220531
  5. BELANTAMAB MAFODOTIN [Suspect]
     Active Substance: BELANTAMAB MAFODOTIN
     Dosage: 85.50 MG, CYC (1.90 MG/KG)
     Route: 042
     Dates: start: 20220809
  6. BORTEZOMIB [Suspect]
     Active Substance: BORTEZOMIB
     Indication: Plasma cell myeloma
     Dosage: 1.82 MG, CYC (1.30 MG/M2)
     Route: 058
     Dates: start: 20211221, end: 20211231
  7. BORTEZOMIB [Suspect]
     Active Substance: BORTEZOMIB
     Dosage: 1.82 MG, CYC (1.30 MG/M2)
     Route: 058
     Dates: start: 20220111, end: 20220121
  8. BORTEZOMIB [Suspect]
     Active Substance: BORTEZOMIB
     Dosage: 1.4 MG, CYC (1 MG/M2)
     Route: 058
     Dates: start: 20220210
  9. BORTEZOMIB [Suspect]
     Active Substance: BORTEZOMIB
     Dosage: 1.4 MG, CYC (1 MG/M2)
     Route: 058
     Dates: start: 20220222, end: 20220304
  10. BORTEZOMIB [Suspect]
     Active Substance: BORTEZOMIB
     Dosage: 1.4 MG, CYC (1 MG/M2)
     Route: 058
     Dates: start: 20220315, end: 20220325
  11. BORTEZOMIB [Suspect]
     Active Substance: BORTEZOMIB
     Dosage: 1.4 MG, CYC (1 MG/M2)
     Route: 058
     Dates: start: 20220412, end: 20220419
  12. BORTEZOMIB [Suspect]
     Active Substance: BORTEZOMIB
     Dosage: 1.4 MG, CYC (1 MG/M2)
     Route: 058
     Dates: start: 20220510, end: 20220520
  13. BORTEZOMIB [Suspect]
     Active Substance: BORTEZOMIB
     Dosage: 1.4 MG, CYC (1 MG/M2)
     Route: 058
     Dates: start: 20220531
  14. DEXAMETHASONE [Suspect]
     Active Substance: DEXAMETHASONE
     Indication: Plasma cell myeloma
     Dosage: 20 MG
     Route: 042
     Dates: start: 20211221
  15. DEXAMETHASONE [Suspect]
     Active Substance: DEXAMETHASONE
     Dosage: 20 MG
     Route: 048
     Dates: start: 20211222, end: 20220101
  16. DEXAMETHASONE [Suspect]
     Active Substance: DEXAMETHASONE
     Dosage: 20 MG
     Route: 048
     Dates: start: 20220111, end: 20220122
  17. DEXAMETHASONE [Suspect]
     Active Substance: DEXAMETHASONE
     Dosage: 20 MG
     Route: 048
     Dates: start: 20220210, end: 20220211
  18. DEXAMETHASONE [Suspect]
     Active Substance: DEXAMETHASONE
     Dosage: 20 MG
     Route: 048
     Dates: start: 20220222, end: 20220305
  19. DEXAMETHASONE [Suspect]
     Active Substance: DEXAMETHASONE
     Dosage: 20 MG
     Route: 048
     Dates: start: 20220315, end: 20220326
  20. DEXAMETHASONE [Suspect]
     Active Substance: DEXAMETHASONE
     Dosage: 20 MG
     Route: 048
     Dates: start: 20220412, end: 20220423
  21. DEXAMETHASONE [Suspect]
     Active Substance: DEXAMETHASONE
     Dosage: 20 MG
     Route: 048
     Dates: start: 20220510, end: 20220521
  22. DEXAMETHASONE [Suspect]
     Active Substance: DEXAMETHASONE
     Dosage: 20 MG
     Route: 048
     Dates: start: 20220531

REACTIONS (1)
  - Hypogammaglobulinaemia [Not Recovered/Not Resolved]

NARRATIVE: CASE EVENT DATE: 20220811
